FAERS Safety Report 9996407 (Version 1)
Quarter: 2014Q1

REPORT INFORMATION
  Report Type: Spontaneous
  Country: SI (occurrence: SI)
  Receive Date: 20140311
  Receipt Date: 20140311
  Transmission Date: 20141002
  Serious: Yes (Hospitalization)
  Sender: FDA-Public Use
  Company Number: SI-BAYER-2014-035949

PATIENT
  Age: 79 Year
  Sex: Male

DRUGS (2)
  1. ULTRAVIST [Suspect]
     Indication: COMPUTERISED TOMOGRAM THORAX
     Dosage: UNK
     Route: 042
     Dates: start: 20140128, end: 20140128
  2. ULTRAVIST [Suspect]
     Indication: COMPUTERISED TOMOGRAM ABDOMEN

REACTIONS (1)
  - Asphyxia [Recovered/Resolved]
